FAERS Safety Report 5170433-7 (Version None)
Quarter: 2006Q4

REPORT INFORMATION
  Report Type: 
  Country: None (occurrence: None)
  Receive Date: 20061212
  Receipt Date: 20061205
  Transmission Date: 20070319
  Serious: Yes (Other)
  Sender: FDA-Public Use
  Company Number: US-ROXANE LABORATORIES, INC-2006-DE-06464GD

PATIENT
  Sex: Male

DRUGS (1)
  1. NAPROXEN [Suspect]
     Route: 048
     Dates: start: 20050701

REACTIONS (7)
  - ANAPHYLACTIC REACTION [None]
  - GENERALISED ERYTHEMA [None]
  - HYPERTENSION [None]
  - OEDEMA PERIPHERAL [None]
  - PRURITUS GENERALISED [None]
  - SWOLLEN TONGUE [None]
  - TACHYCARDIA [None]
